FAERS Safety Report 14743793 (Version 3)
Quarter: 2018Q2

REPORT INFORMATION
  Report Type: Spontaneous
  Country: US (occurrence: US)
  Receive Date: 20180410
  Receipt Date: 20180426
  Transmission Date: 20180711
  Serious: Yes (Hospitalization, Other)
  Sender: FDA-Public Use
  Company Number: US-ASTRAZENECA-2018SE43908

PATIENT
  Age: 1005 Month
  Sex: Female
  Weight: 70.3 kg

DRUGS (7)
  1. TUDORZA PRESSAIR [Suspect]
     Active Substance: ACLIDINIUM BROMIDE
     Indication: DYSPNOEA
     Dosage: 400 MCG ONE PUFF TWICE A DAY
     Route: 055
     Dates: end: 20180307
  2. TUDORZA PRESSAIR [Suspect]
     Active Substance: ACLIDINIUM BROMIDE
     Indication: DYSPNOEA
     Dosage: 400 MCG ONE PUFF TWICE A DAY
     Route: 055
     Dates: start: 201803
  3. ALBUTEROL. [Suspect]
     Active Substance: ALBUTEROL
     Indication: DYSPNOEA
     Dosage: 4 TIMES A DAY
     Route: 055
     Dates: start: 20180307
  4. PROAIR HFA [Concomitant]
     Active Substance: ALBUTEROL SULFATE
     Indication: DYSPNOEA
     Dosage: AS REQUIRED
     Route: 055
  5. TUDORZA PRESSAIR [Suspect]
     Active Substance: ACLIDINIUM BROMIDE
     Indication: CHRONIC OBSTRUCTIVE PULMONARY DISEASE
     Dosage: 400 MCG ONE PUFF TWICE A DAY
     Route: 055
     Dates: end: 20180307
  6. TUDORZA PRESSAIR [Suspect]
     Active Substance: ACLIDINIUM BROMIDE
     Indication: CHRONIC OBSTRUCTIVE PULMONARY DISEASE
     Dosage: 400 MCG ONE PUFF TWICE A DAY
     Route: 055
     Dates: start: 201803
  7. ALBUTEROL. [Suspect]
     Active Substance: ALBUTEROL
     Indication: DYSPNOEA
     Dosage: 2 TIMES A DAY
     Route: 055

REACTIONS (11)
  - Blindness [Not Recovered/Not Resolved]
  - Cardiac disorder [Unknown]
  - Malaise [Recovering/Resolving]
  - Cataract [Not Recovered/Not Resolved]
  - Respiration abnormal [Recovering/Resolving]
  - Malignant melanoma [Unknown]
  - Tremor [Recovered/Resolved]
  - Insomnia [Recovered/Resolved]
  - Loss of consciousness [Recovered/Resolved]
  - Sinusitis [Unknown]
  - Device malfunction [Unknown]

NARRATIVE: CASE EVENT DATE: 2018
